FAERS Safety Report 9400252 (Version 3)
Quarter: 2013Q3

REPORT INFORMATION
  Report Type: Spontaneous
  Country: IT (occurrence: IT)
  Receive Date: 20130715
  Receipt Date: 20130910
  Transmission Date: 20140515
  Serious: Yes (Hospitalization)
  Sender: FDA-Public Use
  Company Number: IT-PFIZER INC-2013203051

PATIENT
  Age: 6 Year
  Sex: Female

DRUGS (1)
  1. AZITHROMYCIN [Suspect]
     Indication: INFLUENZA
     Dosage: 500 MG, 1X/DAY
     Dates: start: 20130125, end: 20130128

REACTIONS (1)
  - Vasculitis [Recovering/Resolving]
